FAERS Safety Report 18452893 (Version 1)
Quarter: 2020Q4

REPORT INFORMATION
  Report Type: Spontaneous
  Country: ES (occurrence: ES)
  Receive Date: 20201102
  Receipt Date: 20201102
  Transmission Date: 20210114
  Serious: Yes (Hospitalization)
  Sender: FDA-Public Use
  Company Number: ES-SUN PHARMACEUTICAL INDUSTRIES LTD-2020RR-266209

PATIENT
  Age: 73 Year
  Sex: Male
  Weight: 92 kg

DRUGS (4)
  1. DUOTRAV 40 MICROGRAMOS/ML + 5 MG/ML COLIRIO EN SOLUCION, 1 FRASCO D... [Concomitant]
     Indication: GLAUCOMA
     Dosage: 30 DIAS ()
     Route: 047
  2. GEMCITABINE. [Suspect]
     Active Substance: GEMCITABINE
     Indication: ADJUVANT THERAPY
     Dosage: 2000MG CADA 7 DIAS (1,8,15)
     Route: 042
     Dates: start: 20200729, end: 20200830
  3. CAPECITABINA (1224A) [Suspect]
     Active Substance: CAPECITABINE
     Indication: PRODUCT USED FOR UNKNOWN INDICATION
     Dosage: 1500 MG CADA 12H
     Route: 048
     Dates: start: 20200729, end: 20200830
  4. OMEPRAZOL AUROVITAS SPAIN 20 MG CAPSULAS DURAS GASTRORRESISTENTES E... [Concomitant]
     Indication: PRODUCT USED FOR UNKNOWN INDICATION
     Dosage: 1 CAPSULA/24 HORAS ()
     Route: 048

REACTIONS (1)
  - Cerebellar stroke [Recovering/Resolving]

NARRATIVE: CASE EVENT DATE: 20200830
